FAERS Safety Report 7792907-2 (Version None)
Quarter: 2011Q4

REPORT INFORMATION
  Report Type: 
  Country: None (occurrence: None)
  Receive Date: 20111003
  Receipt Date: 20110920
  Transmission Date: 20120403
  Serious: Yes (Hospitalization, Other)
  Sender: FDA-Public Use
  Company Number: PHBS2006JP16371

PATIENT
  Sex: Male

DRUGS (7)
  1. PREDNISOLONE [Concomitant]
     Indication: HEART TRANSPLANT
     Dosage: 18 MG, UNK
     Route: 048
     Dates: start: 20051201, end: 20060729
  2. AZATHIOPRINE [Concomitant]
     Indication: HEART TRANSPLANT
     Dosage: UNK UKN, UNK
     Route: 048
  3. MYCOPHENOLATE MOFETIL (CELLCEPT) [Suspect]
     Dosage: 800 MG, DAILY
     Dates: start: 20060728
  4. NEORAL [Suspect]
     Indication: HEART TRANSPLANT
     Dosage: 70 TO 330 MG DAILY
     Route: 048
     Dates: start: 20051201, end: 20060729
  5. MYCOPHENOLATE MOFETIL (CELLCEPT) [Suspect]
     Indication: HEART TRANSPLANT
     Dosage: 800 MG DAILY
     Route: 048
     Dates: start: 20051201, end: 20060123
  6. MYCOPHENOLATE MOFETIL (CELLCEPT) [Suspect]
     Dosage: 800 MG, UNK
     Route: 048
     Dates: end: 20060301
  7. MYCOPHENOLATE MOFETIL (CELLCEPT) [Suspect]
     Dosage: 800 MG, DAILY
     Dates: start: 20060729

REACTIONS (5)
  - HEREDITARY HAEMOLYTIC ANAEMIA [None]
  - DRUG LEVEL DECREASED [None]
  - HAEMOLYSIS [None]
  - PANCYTOPENIA [None]
  - HEART TRANSPLANT REJECTION [None]
